FAERS Safety Report 4937227-6 (Version None)
Quarter: 2006Q1

REPORT INFORMATION
  Report Type: 
  Country: None (occurrence: None)
  Receive Date: 20060309
  Receipt Date: 20060301
  Transmission Date: 20060701
  Serious: Yes (Other)
  Sender: FDA-Public Use
  Company Number: US-JNJFOC-20060301925

PATIENT
  Sex: Female
  Weight: 50.35 kg

DRUGS (4)
  1. DURAGESIC-100 [Suspect]
     Route: 062
  2. PERCOCET [Concomitant]
     Route: 048
  3. PERCOCET [Concomitant]
     Indication: MIGRAINE
     Route: 048
  4. ACTIQ [Concomitant]
     Indication: PAIN
     Route: 048

REACTIONS (3)
  - FALL [None]
  - FEELING ABNORMAL [None]
  - SPINAL FRACTURE [None]
